FAERS Safety Report 4710255-1 (Version None)
Quarter: 2005Q3

REPORT INFORMATION
  Report Type: 
  Country: None (occurrence: None)
  Receive Date: 20050707
  Receipt Date: 20050623
  Transmission Date: 20060218
  Serious: Yes (Death, Hospitalization)
  Sender: FDA-Public Use
  Company Number: 2005S1004693

PATIENT
  Age: 72 Year
  Sex: Male

DRUGS (6)
  1. APOKYN [Suspect]
     Indication: PARKINSON'S DISEASE
     Dosage: 0.3 ML; QD; SC
     Route: 058
     Dates: start: 20050503, end: 20050505
  2. CARBIDOPA AND LEVODOPA [Concomitant]
  3. ENTACAPONE [Concomitant]
  4. TRIMETHOBENZAMIDE [Concomitant]
  5. HYDROCHLORIDE [Concomitant]
  6. PERGOLIDE MESYLATE [Concomitant]

REACTIONS (4)
  - HYPERHIDROSIS [None]
  - MUSCLE RIGIDITY [None]
  - MYOCARDIAL INFARCTION [None]
  - TREMOR [None]
